FAERS Safety Report 15668889 (Version 2)
Quarter: 2019Q1

REPORT INFORMATION
  Report Type: Spontaneous
  Country: US (occurrence: US)
  Receive Date: 20181129
  Receipt Date: 20190108
  Transmission Date: 20190417
  Serious: No
  Sender: FDA-Public Use
  Company Number: US-ASTRAZENECA-2018SF44682

PATIENT
  Sex: Female

DRUGS (1)
  1. PULMICORT FLEXHALER [Suspect]
     Active Substance: BUDESONIDE
     Dosage: 180.0MG UNKNOWN
     Route: 055

REACTIONS (6)
  - Anxiety [Unknown]
  - Migraine [Unknown]
  - Device issue [Unknown]
  - Intentional device misuse [Unknown]
  - Overdose [Unknown]
  - Asthenia [Unknown]
